FAERS Safety Report 10337828 (Version 2)
Quarter: 2014Q3

REPORT INFORMATION
  Report Type: Spontaneous
  Country: US (occurrence: US)
  Receive Date: 20140724
  Receipt Date: 20140724
  Transmission Date: 20150326
  Serious: No
  Sender: FDA-Public Use
  Company Number: US-UNITED THERAPEUTICS-UTC-047446

PATIENT
  Age: 59 Year
  Sex: Female

DRUGS (4)
  1. REMODULIN [Suspect]
     Active Substance: TREPROSTINIL
     Dosage: 0.07 UG/KG/MIN, CONTINUING
     Route: 041
     Dates: start: 20100703
  2. DIURETICS [Concomitant]
     Active Substance: UNSPECIFIED INGREDIENT
  3. OPSUMT [Concomitant]
     Indication: PRODUCT USED FOR UNKNOWN INDICATION
  4. REVATIO [Concomitant]
     Active Substance: SILDENAFIL CITRATE
     Indication: PRODUCT USED FOR UNKNOWN INDICATION

REACTIONS (1)
  - Drug dose omission [Recovered/Resolved]

NARRATIVE: CASE EVENT DATE: 201403
